FAERS Safety Report 5601185-1 (Version None)
Quarter: 2008Q1

REPORT INFORMATION
  Report Type: 
  Country: None (occurrence: None)
  Receive Date: 20080122
  Receipt Date: 20080122
  Transmission Date: 20080703
  Serious: Yes (Other)
  Sender: FDA-Public Use
  Company Number: None

PATIENT
  Age: 72 Year
  Sex: Male
  Weight: 86.1834 kg

DRUGS (1)
  1. ALAVERT [Suspect]
     Indication: SINUS DISORDER
     Dosage: 10 MG EACH DAY
     Dates: start: 20080115, end: 20080118

REACTIONS (1)
  - DIZZINESS [None]
